FAERS Safety Report 9100356 (Version 1)
Quarter: 2013Q1

REPORT INFORMATION
  Report Type: Spontaneous
  Country: FR (occurrence: FR)
  Receive Date: 20130215
  Receipt Date: 20130215
  Transmission Date: 20140127
  Serious: Yes (Hospitalization)
  Sender: FDA-Public Use
  Company Number: FR-BAYER-2013-017918

PATIENT
  Age: 43 Year
  Sex: Male

DRUGS (1)
  1. ADALATE [Suspect]
     Indication: RAYNAUD^S PHENOMENON
     Dosage: UNK
     Route: 048
     Dates: start: 20120111, end: 20120611

REACTIONS (1)
  - Tubulointerstitial nephritis [Recovered/Resolved with Sequelae]
